FAERS Safety Report 17010281 (Version 6)
Quarter: 2020Q1

REPORT INFORMATION
  Report Type: Spontaneous
  Country: US (occurrence: US)
  Receive Date: 20191108
  Receipt Date: 20200127
  Transmission Date: 20200409
  Serious: Yes (Other)
  Sender: FDA-Public Use
  Company Number: US-PFIZER INC-2019485327

PATIENT
  Age: 56 Year
  Sex: Female
  Weight: 93.42 kg

DRUGS (2)
  1. LATANOPROST. [Suspect]
     Active Substance: LATANOPROST
     Indication: GLAUCOMA
     Dosage: 1 GTT, 1X/DAY(ON QHS ONE GTT)
     Route: 031
     Dates: start: 20010727
  2. PATADAY [Concomitant]
     Active Substance: OLOPATADINE HYDROCHLORIDE
     Indication: CONJUNCTIVITIS ALLERGIC
     Dosage: UNK, AS NEEDED
     Dates: start: 2008

REACTIONS (4)
  - Dyspnoea [Recovered/Resolved]
  - Monoplegia [Recovered/Resolved]
  - Drug hypersensitivity [Recovered/Resolved]
  - Movement disorder [Recovered/Resolved]

NARRATIVE: CASE EVENT DATE: 201110
